FAERS Safety Report 5795521-3 (Version None)
Quarter: 2008Q2

REPORT INFORMATION
  Report Type: 
  Country: None (occurrence: None)
  Receive Date: 20080630
  Receipt Date: 20080618
  Transmission Date: 20081010
  Serious: Yes (Hospitalization)
  Sender: FDA-Public Use
  Company Number: PHHY2008BR11902

PATIENT
  Age: 14 Year
  Sex: Male

DRUGS (1)
  1. TEGRETOL [Suspect]
     Dosage: UNK
     Dates: start: 20080513

REACTIONS (4)
  - ACCIDENTAL DRUG INTAKE BY CHILD [None]
  - GASTRIC LAVAGE [None]
  - PAIN [None]
  - VOMITING [None]
